FAERS Safety Report 8972423 (Version 4)
Quarter: 2013Q1

REPORT INFORMATION
  Report Type: Spontaneous
  Country: US (occurrence: US)
  Receive Date: 20121218
  Receipt Date: 20130110
  Transmission Date: 20140127
  Serious: Yes (Death, Hospitalization, Other)
  Sender: FDA-Public Use
  Company Number: US-UCBSA-073092

PATIENT
  Age: 53 None
  Sex: Female

DRUGS (1)
  1. CIMZIA [Suspect]
     Indication: CROHN^S DISEASE
     Dates: start: 20110222

REACTIONS (3)
  - Cardiac disorder [Fatal]
  - Myocardial infarction [Unknown]
  - Blood count abnormal [Not Recovered/Not Resolved]
